FAERS Safety Report 12061644 (Version 1)
Quarter: 2016Q1

REPORT INFORMATION
  Report Type: Spontaneous
  Country: US (occurrence: US)
  Receive Date: 20160210
  Receipt Date: 20160210
  Transmission Date: 20160526
  Serious: No
  Sender: FDA-Public Use
  Company Number: US-ALLERGAN-1504056US

PATIENT
  Age: 58 Year
  Sex: Male
  Weight: 108.84 kg

DRUGS (9)
  1. CYCLOBENZAPRINE [Concomitant]
     Active Substance: CYCLOBENZAPRINE
     Indication: MUSCLE SPASTICITY
     Dosage: 5 MG, UNK
     Route: 048
  2. GABAPENTIN. [Concomitant]
     Active Substance: GABAPENTIN
     Indication: PAIN
     Dosage: 300 MG, UNK
  3. BOTOX [Suspect]
     Active Substance: ONABOTULINUMTOXINA
     Dosage: 300 UNITS, SINGLE
     Route: 030
     Dates: start: 20140730, end: 20140730
  4. GABAPENTIN. [Concomitant]
     Active Substance: GABAPENTIN
     Dosage: 600 MG, UNK
  5. BOTOX [Suspect]
     Active Substance: ONABOTULINUMTOXINA
     Indication: PRODUCT USED FOR UNKNOWN INDICATION
     Dosage: 300 UNITS, SINGLE
     Route: 030
     Dates: start: 20140106, end: 20140106
  6. BOTOX [Suspect]
     Active Substance: ONABOTULINUMTOXINA
     Dosage: 300 UNITS, SINGLE
     Route: 030
     Dates: start: 20141031, end: 20141031
  7. BOTOX [Suspect]
     Active Substance: ONABOTULINUMTOXINA
     Dosage: 300 UNITS, SINGLE
     Route: 030
     Dates: start: 20140430, end: 20140430
  8. BOTOX [Suspect]
     Active Substance: ONABOTULINUMTOXINA
     Dosage: 300 UNITS, SINGLE
     Route: 030
     Dates: start: 20150206, end: 20150206
  9. BACLOFEN. [Concomitant]
     Active Substance: BACLOFEN
     Indication: MUSCLE SPASTICITY
     Dosage: 20 MG, QID
     Route: 048

REACTIONS (2)
  - Myositis [Not Recovered/Not Resolved]
  - Injection site extravasation [Unknown]

NARRATIVE: CASE EVENT DATE: 20150206
